FAERS Safety Report 7748488-2 (Version None)
Quarter: 2011Q3

REPORT INFORMATION
  Report Type: 
  Country: None (occurrence: None)
  Receive Date: 20110914
  Receipt Date: 20110906
  Transmission Date: 20111222
  Serious: No
  Sender: FDA-Public Use
  Company Number: US-BIOGENIDEC-2010BI008494

PATIENT
  Sex: Male

DRUGS (2)
  1. TYSABRI [Suspect]
     Indication: MULTIPLE SCLEROSIS
     Route: 042
     Dates: start: 20091209, end: 20100609
  2. TYSABRI [Suspect]
     Route: 042
     Dates: start: 20110708

REACTIONS (5)
  - HEADACHE [None]
  - TOOTHACHE [None]
  - FATIGUE [None]
  - HYPOAESTHESIA [None]
  - GINGIVAL DISORDER [None]
